FAERS Safety Report 4674590-8 (Version None)
Quarter: 2005Q2

REPORT INFORMATION
  Report Type: 
  Country: None (occurrence: None)
  Receive Date: 20050526
  Receipt Date: 20050512
  Transmission Date: 20051028
  Serious: Yes (Life-Threatening, Hospitalization)
  Sender: FDA-Public Use
  Company Number: FR-AMGEN-UK132722

PATIENT
  Age: 49 Year
  Sex: Male

DRUGS (8)
  1. MIMPARA [Suspect]
     Indication: HYPERPARATHYROIDISM SECONDARY
     Route: 048
     Dates: start: 20050309, end: 20050416
  2. LAROXYL [Concomitant]
     Route: 065
  3. NEURONTIN [Concomitant]
     Route: 065
  4. MOTILIUM [Concomitant]
     Route: 065
  5. RIVOTRIL [Concomitant]
     Route: 065
  6. AZANTAC [Concomitant]
     Route: 065
  7. ALLOPURINOL [Concomitant]
     Route: 065
  8. KAYEXALATE [Concomitant]
     Route: 065

REACTIONS (9)
  - ABDOMINAL RIGIDITY [None]
  - CARDIOMEGALY [None]
  - CHOLECYSTITIS [None]
  - CYTOLYTIC HEPATITIS [None]
  - FLUID OVERLOAD [None]
  - HYPERKALAEMIA [None]
  - HYPERTHERMIA [None]
  - PULMONARY OEDEMA [None]
  - SEPSIS [None]
